FAERS Safety Report 4499710-X (Version None)
Quarter: 2004Q4

REPORT INFORMATION
  Report Type: 
  Country: None (occurrence: None)
  Receive Date: 20041108
  Receipt Date: 20041025
  Transmission Date: 20050328
  Serious: Yes (Hospitalization, Other)
  Sender: FDA-Public Use
  Company Number: 2004084627

PATIENT
  Age: 51 Year
  Sex: Male

DRUGS (4)
  1. ZELDOX (CAPSULES)(ZIPRASIDONE) [Suspect]
     Indication: DEPRESSION
     Dosage: 160 MG, ORAL
     Route: 048
  2. ZELDOX (CAPSULES)(ZIPRASIDONE) [Suspect]
     Indication: PSYCHOTIC DISORDER
     Dosage: 160 MG, ORAL
     Route: 048
  3. OXAZEPAM [Concomitant]
  4. CITALOPRAM HYDROBROMIDE [Concomitant]

REACTIONS (4)
  - ALCOHOL WITHDRAWAL SYNDROME [None]
  - ENURESIS [None]
  - GRAND MAL CONVULSION [None]
  - TONGUE BITING [None]
